FAERS Safety Report 26176988 (Version 1)
Quarter: 2025Q4

REPORT INFORMATION
  Report Type: Spontaneous
  Country: US (occurrence: US)
  Receive Date: 20251218
  Receipt Date: 20251218
  Transmission Date: 20260117
  Serious: Yes (Other)
  Sender: DR REDDYS
  Company Number: None

PATIENT
  Age: 79 Year
  Sex: Female

DRUGS (2)
  1. PEMETREXED [Suspect]
     Active Substance: PEMETREXED
     Indication: Lung adenocarcinoma
  2. CARBOPLATIN [Suspect]
     Active Substance: CARBOPLATIN
     Indication: Lung adenocarcinoma

REACTIONS (8)
  - Administration site extravasation [Unknown]
  - Pneumonia [Unknown]
  - Pleural effusion [Unknown]
  - Urinary tract infection [Unknown]
  - Blood triglycerides increased [Unknown]
  - Gastric ulcer [Unknown]
  - Anaemia [Recovered/Resolved]
  - Atrial fibrillation [Unknown]
